FAERS Safety Report 12691314 (Version 1)
Quarter: 2016Q3

REPORT INFORMATION
  Report Type: Spontaneous
  Country: JP (occurrence: JP)
  Receive Date: 20160826
  Receipt Date: 20160826
  Transmission Date: 20161109
  Serious: Yes (Death)
  Sender: FDA-Public Use
  Company Number: JP-MALLINCKRODT-T201600387

PATIENT
  Age: 76 Year
  Sex: Female
  Weight: 34 kg

DRUGS (20)
  1. METHADONE [Suspect]
     Active Substance: METHADONE HYDROCHLORIDE
     Dosage: 5 MG (5 MG DAILY DOSE)
     Route: 048
     Dates: start: 20160101, end: 20160119
  2. MORPHINE HCL [Concomitant]
     Active Substance: MORPHINE HYDROCHLORIDE
     Indication: ANALGESIC THERAPY
     Dosage: 10 MG
     Route: 051
     Dates: start: 20151225, end: 20160107
  3. MORPHINE HCL [Concomitant]
     Active Substance: MORPHINE HYDROCHLORIDE
     Dosage: 10 MG
     Route: 051
     Dates: start: 20160114, end: 20160114
  4. MORPHINE HCL [Concomitant]
     Active Substance: MORPHINE HYDROCHLORIDE
     Dosage: 12 MG
     Route: 051
     Dates: start: 20160115, end: 20160117
  5. MAGMITT [Concomitant]
     Active Substance: MAGNESIUM OXIDE
     Dosage: 990 MG
     Route: 048
  6. CALONAL [Concomitant]
     Active Substance: ACETAMINOPHEN
     Dosage: 900 MG
     Route: 048
  7. MORPHINE HCL [Concomitant]
     Active Substance: MORPHINE HYDROCHLORIDE
     Dosage: 15 MG
     Route: 051
     Dates: start: 20160108, end: 20160110
  8. MIDAZOLAM [Concomitant]
     Active Substance: MIDAZOLAM\MIDAZOLAM HYDROCHLORIDE
     Indication: ANALGESIC THERAPY
     Dosage: 2 MG
     Route: 051
  9. MORPHINE HCL [Concomitant]
     Active Substance: MORPHINE HYDROCHLORIDE
     Dosage: 14 MG
     Route: 051
     Dates: start: 20160118, end: 20160118
  10. LINTON [Concomitant]
     Active Substance: HALOPERIDOL
     Dosage: 0.5 MG
     Route: 051
  11. TRAVELMIN [Concomitant]
     Active Substance: DIMENHYDRINATE
     Dosage: 0.2 DF
     Route: 051
  12. TRAZODONE HYDROCHLORIDE. [Concomitant]
     Active Substance: TRAZODONE HYDROCHLORIDE
     Dosage: 25 MG
     Route: 048
     Dates: end: 20160106
  13. BAKTAR [Concomitant]
     Active Substance: SULFAMETHOXAZOLE\TRIMETHOPRIM
     Dosage: 0.5 DF
     Route: 048
  14. RINDERON V [Concomitant]
     Active Substance: BETAMETHASONE VALERATE
     Indication: ANALGESIC THERAPY
     Dosage: 4 MG
     Route: 051
  15. MORPHINE HCL [Concomitant]
     Active Substance: MORPHINE HYDROCHLORIDE
     Dosage: 1.5 MG, PRN
     Route: 051
     Dates: start: 20151225
  16. MORPHINE HCL [Concomitant]
     Active Substance: MORPHINE HYDROCHLORIDE
     Dosage: 8 MG
     Route: 051
     Dates: start: 20160111, end: 20160113
  17. LOXOPROFEN [Concomitant]
     Active Substance: LOXOPROFEN
     Dosage: 180 MG
     Route: 048
     Dates: end: 20160106
  18. METHADONE [Suspect]
     Active Substance: METHADONE HYDROCHLORIDE
     Indication: CANCER PAIN
     Dosage: 5 MG (10 MG DAILY DOSE)
     Route: 048
     Dates: start: 20151225, end: 20151231
  19. TULOBUTEROL [Concomitant]
     Active Substance: TULOBUTEROL
     Dosage: 2 MG
     Route: 062
  20. MORPHINE HCL [Concomitant]
     Active Substance: MORPHINE HYDROCHLORIDE
     Dosage: 16 MG
     Route: 051
     Dates: start: 20160119, end: 20160119

REACTIONS (3)
  - Vomiting [Recovered/Resolved]
  - Lung adenocarcinoma [Fatal]
  - Somnolence [Recovered/Resolved]

NARRATIVE: CASE EVENT DATE: 20151229
